FAERS Safety Report 18242039 (Version 3)
Quarter: 2020Q4

REPORT INFORMATION
  Report Type: Report from Study
  Country: US (occurrence: US)
  Receive Date: 20200908
  Receipt Date: 20201015
  Transmission Date: 20210113
  Serious: Yes (Other)
  Sender: FDA-Public Use
  Company Number: US-GLAXOSMITHKLINE-US2020AMR174947

PATIENT
  Sex: Female

DRUGS (2)
  1. NIRAPARIB [Suspect]
     Active Substance: NIRAPARIB
     Dosage: 100 MG, QD
     Dates: start: 20200915
  2. NIRAPARIB [Suspect]
     Active Substance: NIRAPARIB
     Indication: MALIGNANT PERITONEAL NEOPLASM
     Dosage: 200 MG, QD
     Dates: start: 20200817

REACTIONS (6)
  - Rectal haemorrhage [Recovered/Resolved]
  - Confusional state [Unknown]
  - Malaise [Unknown]
  - Therapeutic drug monitoring analysis not performed [Unknown]
  - Off label use [Unknown]
  - Constipation [Recovered/Resolved]
